FAERS Safety Report 26128236 (Version 1)
Quarter: 2025Q4

REPORT INFORMATION
  Report Type: Spontaneous
  Country: CA (occurrence: CA)
  Receive Date: 20251207
  Receipt Date: 20251207
  Transmission Date: 20260118
  Serious: Yes (Life-Threatening)
  Sender: AUROBINDO
  Company Number: CA-AUROBINDO-AUR-APL-2025-061254

PATIENT
  Age: 62 Year
  Sex: Female
  Weight: 111 kg

DRUGS (44)
  1. PEMETREXED DISODIUM HEMIPENTAHYDRATE [Suspect]
     Active Substance: PEMETREXED DISODIUM HEMIPENTAHYDRATE
     Indication: Non-small cell lung cancer metastatic
     Dosage: 500 MG/M2, 1 EVERY 3  WEEKS
  2. PEMETREXED DISODIUM HEMIPENTAHYDRATE [Suspect]
     Active Substance: PEMETREXED DISODIUM HEMIPENTAHYDRATE
     Dosage: 375 MG/M2, 1 EVERY 3  WEEKS
  3. CARBOPLATIN [Suspect]
     Active Substance: CARBOPLATIN
     Indication: Non-small cell lung cancer metastatic
     Dosage: UNK,
  4. (6S)-5 METHYLTETRAHYDROFO  LATE  GLUCOSAMINE;BIOTIN;CA  LCIUM PANTOTHE [Concomitant]
     Indication: Gastrointestinal disorder
     Dosage: 40.0 MILLIGRAM, TWO TIMES A DAY
     Route: 065
  5. ACETAMINOPHEN EXTRA STRENGTH [Concomitant]
     Indication: Febrile neutropenia
     Dosage: 1.0 GRAM, 3 TIMES A DAY
     Route: 065
  6. ACETARSONE/NEOMYCIN  SULFATE/NYSTATIN/POLY  MYXIN B SULFATE [Concomitant]
     Indication: Oral candidiasis
     Dosage: UNK
     Route: 065
  7. ASPIRIN [Concomitant]
     Active Substance: ASPIRIN
     Indication: Thrombocytopenia
     Dosage: 204.0 MILLILITER,  1 EVERY 1 DAYS
     Route: 065
  8. ASPIRIN [Concomitant]
     Active Substance: ASPIRIN
     Dosage: 180 MILLILITER,  1 EVERY 1 DAYS
     Route: 065
  9. ACYCLOVIR SODIUM [Concomitant]
     Active Substance: ACYCLOVIR SODIUM
     Indication: Mucosal inflammation
     Dosage: UNK,  1 EVERY 1  WEEKS
     Route: 065
  10. ACYCLOVIR SODIUM [Concomitant]
     Active Substance: ACYCLOVIR SODIUM
     Dosage: 400.0 MILLIGRAM, 1 EVERY 12  HOURS
     Route: 065
  11. APREPITANT [Concomitant]
     Active Substance: APREPITANT
     Indication: Nausea
     Dosage: 125.0 MILLIGRAM, 1 EVERY 1 DAYS
     Route: 065
  12. APREPITANT [Concomitant]
     Active Substance: APREPITANT
     Dosage: 80 MILLIGRAM, 1 EVERY 1 DAYS
     Route: 065
  13. CEFTRIAXONE [Concomitant]
     Active Substance: CEFTRIAXONE
     Indication: Neutropenia
     Dosage: 1 GRAM,  1 EVERY 1 DAYS
     Route: 065
  14. DALTEPARINA [Concomitant]
     Indication: Thrombosis prophylaxis
     Route: 065
  15. DEXAMETHASONE [Concomitant]
     Active Substance: DEXAMETHASONE
     Indication: Nausea
     Dosage: 4.0 MILLIGRAM, TWO TIMES A DAY
     Route: 065
  16. DEXILANT [Concomitant]
     Active Substance: DEXLANSOPRAZOLE
     Indication: Gastrooesophageal reflux disease
     Dosage: 60.0 MILLIGRAM, ONCE A DAY
     Route: 065
  17. DIMETHICONE/METOCLO  PRAMIDE  HYDROCHLORIDE [Concomitant]
     Indication: Anaemia
     Dosage: 266 MILLILITER, ONCE A DAY
     Route: 065
  18. DIMETHICONE/METOCLO  PRAMIDE  HYDROCHLORIDE [Concomitant]
     Dosage: 280 MILLILITER, ONCE A DAY
     Route: 065
  19. DIMETHICONE/METOCLO  PRAMIDE  HYDROCHLORIDE [Concomitant]
     Dosage: 274 MILLILITER, ONCE A DAY
     Route: 065
  20. FESOTERODINE FUMARATE [Concomitant]
     Indication: Hypertonic bladder
     Route: 065
  21. FLAGYL [Concomitant]
     Active Substance: METRONIDAZOLE\METRONIDAZOLE HYDROCHLORIDE
     Indication: Neutropenia
     Route: 065
  22. FOLIC ACID [Concomitant]
     Active Substance: FOLIC ACID
     Indication: Premedication
     Dosage: 1 MILLIGRAM, ONCE A DAY
     Route: 065
  23. GANCICLOVIR [Concomitant]
     Active Substance: GANCICLOVIR
     Indication: Large intestine infection
     Dosage: 212 MILLIGRAM, ONCE A DAY
     Route: 065
  24. FILGRASTIM [Concomitant]
     Active Substance: FILGRASTIM
     Indication: Neutropenia
     Route: 065
  25. HYDROMORPHONE [Concomitant]
     Active Substance: HYDROMORPHONE
     Indication: Back pain
     Dosage: 3 MILLIGRAM, TWO TIMES A DAY
     Route: 065
  26. HYDROMORPHONE [Concomitant]
     Active Substance: HYDROMORPHONE
     Indication: Mucosal inflammation
     Dosage: 0.5 MILLIGRAM
     Route: 065
  27. HYDROMORPHONE [Concomitant]
     Active Substance: HYDROMORPHONE
     Dosage: 1 MILLIGRAM
     Route: 065
  28. LANTUS [Concomitant]
     Active Substance: INSULIN GLARGINE
     Indication: Hyperglycaemia
     Route: 065
  29. LIDOCAINE HYDROCHLORIDE [Concomitant]
     Active Substance: LIDOCAINE HYDROCHLORIDE
     Indication: Odynophagia
     Dosage: 5 MILLILITER
     Route: 065
  30. MAGNESIUM SULFATE [Concomitant]
     Active Substance: MAGNESIUM SULFATE
     Indication: Supplementation therapy
     Dosage: 2 GRAM, ONCE A DAY
     Route: 065
  31. METHYLPREDNISOLONE ACETATE [Concomitant]
     Indication: Diarrhoea
     Dosage: 160 MILLIGRAM, ONCE A DAY
     Route: 065
  32. METHYLPREDNISOLONE ACETATE [Concomitant]
     Dosage: 40 MILLIGRAM, ONCE A DAY
     Route: 065
  33. METHYLPREDNISOLONE ACETATE [Concomitant]
     Dosage: 90 MILLIGRAM, ONCE A DAY
     Route: 065
  34. METOPROLOL FUMARATE [Concomitant]
     Active Substance: METOPROLOL FUMARATE
     Indication: Sinus tachycardia
     Dosage: 2.5 MILLIGRAM, ONCE A DAY
     Route: 065
  35. OLANZAPINE [Concomitant]
     Active Substance: OLANZAPINE
     Indication: Nausea
     Dosage: 10 MILLIGRAM, ONCE A DAY
     Route: 065
  36. ONDANSETRON [Concomitant]
     Active Substance: ONDANSETRON
     Indication: Nausea
     Dosage: 8 MILLIGRAM, ONCE A DAY
     Route: 065
  37. PANTOPRAZOLE SODIUM [Concomitant]
     Active Substance: PANTOPRAZOLE SODIUM
     Indication: Gastrointestinal disorder
     Dosage: 40 MILLIGRAM, TWO TIMES A DAY
     Route: 065
  38. PREGABALIN [Concomitant]
     Active Substance: PREGABALIN
     Indication: Diabetic neuropathy
     Dosage: 75 MILLIGRAM, TWO TIMES A DAY
     Route: 065
  39. SEMAGLUTIDE [Concomitant]
     Active Substance: SEMAGLUTIDE
     Indication: Type 2 diabetes mellitus
     Dosage: 0.5 MILLIGRAM
     Route: 065
  40. TAZOCIN [Concomitant]
     Indication: Febrile neutropenia
     Route: 065
  41. TRANEXAMIC ACID [Concomitant]
     Active Substance: TRANEXAMIC ACID
     Indication: Blood test
     Dosage: 1000 MILLIGRAM, ONCE A DAY
     Route: 065
  42. TRANEXAMIC ACID [Concomitant]
     Active Substance: TRANEXAMIC ACID
     Dosage: 500 MILLIGRAM, ONCE A DAY
     Route: 065
  43. VENTOLIN [Concomitant]
     Active Substance: ALBUTEROL SULFATE
     Indication: Dyspnoea
     Route: 065
  44. XARELTO [Concomitant]
     Active Substance: RIVAROXABAN
     Indication: Pulmonary embolism
     Dosage: 10 MILLIGRAM
     Route: 065

REACTIONS (1)
  - Mouth haemorrhage [Not Recovered/Not Resolved]
